FAERS Safety Report 8272082-0 (Version None)
Quarter: 2012Q2

REPORT INFORMATION
  Report Type: 
  Country: None (occurrence: None)
  Receive Date: 20120410
  Receipt Date: 20120403
  Transmission Date: 20120825
  Serious: Yes (Other)
  Sender: FDA-Public Use
  Company Number: US-INCYTE CORPORATION-2012IN000519

PATIENT
  Sex: Male

DRUGS (2)
  1. JAKAFI [Suspect]
     Indication: MYELOPROLIFERATIVE DISORDER
     Dosage: 20 MG, BID
     Route: 048
     Dates: start: 20120220, end: 20120319
  2. JAKAFI [Suspect]
     Dosage: 20 MG, QOD
     Route: 048
     Dates: start: 20120320, end: 20120325

REACTIONS (2)
  - PANCYTOPENIA [None]
  - RASH MACULAR [None]
